FAERS Safety Report 15775006 (Version 1)
Quarter: 2018Q4

REPORT INFORMATION
  Report Type: Spontaneous
  Country: DK (occurrence: DK)
  Receive Date: 20181230
  Receipt Date: 20181230
  Transmission Date: 20190205
  Serious: Yes (Hospitalization)
  Sender: FDA-Public Use
  Company Number: DK-TEVA-2018-DK-992837

PATIENT
  Age: 64 Year
  Sex: Male
  Weight: 89 kg

DRUGS (10)
  1. NOVOMIX 30 FLEXPEN [Concomitant]
     Active Substance: INSULIN ASPART
     Indication: TYPE 2 DIABETES MELLITUS
     Dosage: STRENGTH 100E/ML?DOSE: 17DEVICES MORNING AND 14 UNITS EVENING
     Route: 065
     Dates: start: 201611
  2. ZOPICLON ^ORIFARM^ [Concomitant]
     Indication: INSOMNIA
     Dosage: 7.5 MILLIGRAM DAILY; STRENGTH: 7.5 MG DOSE: 1 TABL EVENING DIVIDED INTO QUARTERS
     Route: 048
     Dates: start: 201203
  3. CIALIS [Concomitant]
     Active Substance: TADALAFIL
     Indication: ERECTILE DYSFUNCTION
     Dosage: 5 MILLIGRAM DAILY; STYRKE: 5MG
     Route: 048
     Dates: start: 201503
  4. LOSARTANKALIUM OG HYDROCHLORTHIAZID [Suspect]
     Active Substance: HYDROCHLOROTHIAZIDE\LOSARTAN
     Indication: HYPERTENSION
     Dosage: 1 DOSAGE FORMS DAILY; STYRKE: 100+25 MG
     Route: 048
     Dates: end: 20181126
  5. FINASTERID ^ACTAVIS^ [Concomitant]
     Active Substance: FINASTERIDE
     Indication: DYSURIA
     Dosage: 5 MILLIGRAM DAILY; STYRKE: 5 MG
     Route: 048
     Dates: start: 201610
  6. METFORMIN ^BLUEFISH^ [Concomitant]
     Indication: TYPE 2 DIABETES MELLITUS
     Dosage: 2000 MILLIGRAM DAILY; STYRKE: 500MG
     Route: 048
     Dates: start: 201412
  7. SIMVASTATIN ^KRKA^ [Concomitant]
     Indication: CARDIOVASCULAR EVENT PROPHYLAXIS
     Dosage: 40 MILLIGRAM DAILY; STYRKE: 40MG
     Route: 048
  8. VICTOZA [Concomitant]
     Active Substance: LIRAGLUTIDE
     Indication: TYPE 2 DIABETES MELLITUS
     Dosage: 1.8 MILLIGRAM DAILY; STYRKE: 6MG/ML
     Route: 065
     Dates: start: 201602
  9. AMLODIPIN ^ACTAVIS^ [Concomitant]
     Active Substance: AMLODIPINE BESYLATE
     Indication: HYPERTENSION
     Dosage: 10 MILLIGRAM DAILY; STYRKE: 10MG
     Route: 048
  10. BETOLVEX [Concomitant]
     Active Substance: CYANOCOBALAMIN
     Indication: VITAMIN B12 DEFICIENCY
     Dosage: 1 MILLIGRAM DAILY; STYRKE: 1MG
     Route: 048
     Dates: start: 201412

REACTIONS (4)
  - Squamous cell carcinoma of skin [Recovered/Resolved with Sequelae]
  - Cancer surgery [Recovered/Resolved]
  - Skin wound [Recovered/Resolved]
  - Impaired healing [Recovered/Resolved]

NARRATIVE: CASE EVENT DATE: 201805
